FAERS Safety Report 4330983-X (Version None)
Quarter: 2004Q1

REPORT INFORMATION
  Report Type: 
  Country: None (occurrence: None)
  Receive Date: 20040329
  Receipt Date: 20040319
  Transmission Date: 20041129
  Serious: Yes (Other)
  Sender: FDA-Public Use
  Company Number: HQWYE992619MAR04

PATIENT
  Age: 84 Year
  Sex: Female

DRUGS (4)
  1. PANTOZOL (PANTOPRAZOLE, TABLET, DELAYED RELEASE) [Suspect]
     Dosage: 40 MG 1X PER  1 DAY; ORAL
     Route: 048
     Dates: start: 20031101, end: 20040210
  2. TEMAZEPAM [Concomitant]
  3. LOSARTAN (LOSARTAN) [Concomitant]
  4. BENDROFLUAZIDE (BENDROFLUMETHIAZIDE) [Concomitant]

REACTIONS (3)
  - ASTHENIA [None]
  - FATIGUE [None]
  - RENAL FAILURE ACUTE [None]
